FAERS Safety Report 8222502-2 (Version None)
Quarter: 2012Q1

REPORT INFORMATION
  Report Type: 
  Country: None (occurrence: None)
  Receive Date: 20120320
  Receipt Date: 20120319
  Transmission Date: 20120608
  Serious: Yes (Death)
  Sender: FDA-Public Use
  Company Number: PHHY2012CR024006

PATIENT
  Age: 63 Year
  Sex: Male

DRUGS (1)
  1. DIOVAN HCT [Suspect]
     Indication: HYPERTENSION
     Dosage: (160 MG VALS AND 12.5 MG HYDRO) DURING ONE YEAR AND A HALF

REACTIONS (1)
  - CEREBROVASCULAR ACCIDENT [None]
